FAERS Safety Report 10787440 (Version 2)
Quarter: 2015Q2

REPORT INFORMATION
  Report Type: Report from Study
  Country: RU (occurrence: RU)
  Receive Date: 20150212
  Receipt Date: 20150605
  Transmission Date: 20150821
  Serious: Yes (Death)
  Sender: FDA-Public Use
  Company Number: RU-ROCHE-1527378

PATIENT
  Age: 36 Year
  Weight: 74 kg

DRUGS (2)
  1. PEG-INTERFERON ALFA 2A [Suspect]
     Active Substance: PEGINTERFERON ALFA-2A
     Indication: CHRONIC HEPATITIS C
     Dosage: DATE OF A LAST DOSE PRIOR TO SERIOUS ADVERSE EVENT: 01/APR/2014
     Route: 058
     Dates: start: 20140507
  2. RIBAVIRIN. [Suspect]
     Active Substance: RIBAVIRIN
     Indication: CHRONIC HEPATITIS C
     Dosage: DATE OF A LAST DOSE PRIOR TO SERIOUS ADVERSE EVENT: 01/APR/2013
     Route: 048
     Dates: start: 20130507

REACTIONS (1)
  - Pulmonary tuberculosis [Fatal]

NARRATIVE: CASE EVENT DATE: 20140428
